FAERS Safety Report 6745777-5 (Version None)
Quarter: 2010Q2

REPORT INFORMATION
  Report Type: 
  Country: None (occurrence: None)
  Receive Date: 20100528
  Receipt Date: 20100524
  Transmission Date: 20101027
  Serious: Yes (Other)
  Sender: FDA-Public Use
  Company Number: PHHY2010US33692

PATIENT
  Sex: Female

DRUGS (2)
  1. ENABLEX [Suspect]
     Dosage: 15 MG DAILY
     Route: 048
     Dates: start: 20100208, end: 20100401
  2. ENABLEX [Suspect]
     Dosage: 15 MG
     Route: 048

REACTIONS (1)
  - MENISCUS OPERATION [None]
